FAERS Safety Report 6525855-6 (Version None)
Quarter: 2010Q1

REPORT INFORMATION
  Report Type: 
  Country: None (occurrence: None)
  Receive Date: 20100104
  Receipt Date: 20091228
  Transmission Date: 20100710
  Serious: Yes (Other)
  Sender: FDA-Public Use
  Company Number: B0621112A

PATIENT
  Sex: Female

DRUGS (6)
  1. CLAMOXYL [Suspect]
     Indication: ALLERGY TEST
     Dosage: 1UNIT SINGLE DOSE
     Route: 048
     Dates: start: 20080501, end: 20080501
  2. ANTIHISTAMINIC [Concomitant]
     Indication: ALLERGY PROPHYLAXIS
     Route: 065
     Dates: start: 20080501, end: 20080501
  3. LEUKOTRIENE [Concomitant]
     Indication: ALLERGY PROPHYLAXIS
     Route: 065
     Dates: start: 20080501, end: 20080501
  4. SECTRAL [Concomitant]
     Indication: HYPERTENSION
     Route: 065
  5. TRIATEC [Concomitant]
     Indication: HYPERTENSION
     Route: 065
  6. LASILIX [Concomitant]
     Indication: HYPERTENSION
     Route: 065

REACTIONS (8)
  - GAMMA-GLUTAMYLTRANSFERASE INCREASED [None]
  - HEPATOCELLULAR INJURY [None]
  - HYPERSENSITIVITY [None]
  - OEDEMA PERIPHERAL [None]
  - PYREXIA [None]
  - RASH GENERALISED [None]
  - SKIN TEST NEGATIVE [None]
  - TRANSAMINASES INCREASED [None]
